FAERS Safety Report 17761463 (Version 3)
Quarter: 2022Q2

REPORT INFORMATION
  Report Type: Report from Study
  Country: CA (occurrence: CA)
  Receive Date: 20200508
  Receipt Date: 20220407
  Transmission Date: 20220721
  Serious: Yes (Other)
  Sender: FDA-Public Use
  Company Number: CA-SA-2020SA114931

PATIENT
  Age: 85 Year
  Sex: Male

DRUGS (11)
  1. AMLODIPINE BESYLATE [Suspect]
     Active Substance: AMLODIPINE BESYLATE
     Dosage: 1 (UNIT UNKNOWN), QD
     Route: 065
  2. AMLODIPINE BESYLATE [Suspect]
     Active Substance: AMLODIPINE BESYLATE
     Dosage: 1 IN 24 HR
  3. RAMIPRIL [Suspect]
     Active Substance: RAMIPRIL
     Dosage: 1 (UNIT UNKNOWN), QD
     Route: 065
  4. RAMIPRIL [Suspect]
     Active Substance: RAMIPRIL
     Dosage: (1 IN 24 HR)
     Route: 065
  5. RAMIPRIL [Suspect]
     Active Substance: RAMIPRIL
     Dosage: 5 MG,1 IN 24 HR
     Route: 048
  6. RAMIPRIL [Suspect]
     Active Substance: RAMIPRIL
     Dosage: 15 MG,1 IN 24 HR
     Route: 048
  7. SANDOSTATIN LAR DEPOT [Suspect]
     Active Substance: OCTREOTIDE ACETATE
     Indication: Carcinoid syndrome
     Dosage: 10 MG
     Route: 030
  8. SANDOSTATIN LAR DEPOT [Suspect]
     Active Substance: OCTREOTIDE ACETATE
     Dosage: 30 MG, QM
     Route: 030
  9. SANDOSTATIN [Suspect]
     Active Substance: OCTREOTIDE ACETATE
     Indication: Carcinoid syndrome
     Dosage: 30 MG,1 IN 1 M
     Route: 030
  10. SANDOSTATIN [Suspect]
     Active Substance: OCTREOTIDE ACETATE
     Dosage: 10 MG
     Route: 030
  11. ATORVASTATIN [Concomitant]
     Active Substance: ATORVASTATIN
     Dosage: UNK
     Route: 065

REACTIONS (17)
  - Joint swelling [Unknown]
  - Rheumatoid arthritis [Unknown]
  - Blood pressure systolic increased [Unknown]
  - Gait disturbance [Unknown]
  - Blood pressure diastolic decreased [Unknown]
  - Arthralgia [Unknown]
  - Product dispensing error [Unknown]
  - Incorrect dosage administered [Unknown]
  - COVID-19 [Unknown]
  - Gout [Unknown]
  - Heart rate decreased [Unknown]
  - Pain in extremity [Unknown]
  - Skin exfoliation [Unknown]
  - Fatigue [Unknown]
  - Arthralgia [Unknown]
  - Blood pressure decreased [Unknown]
  - Skin laceration [Unknown]
